FAERS Safety Report 20203980 (Version 2)
Quarter: 2021Q4

REPORT INFORMATION
  Report Type: Spontaneous
  Country: JP (occurrence: JP)
  Receive Date: 20211219
  Receipt Date: 20211222
  Transmission Date: 20220303
  Serious: Yes (Hospitalization, Other)
  Sender: FDA-Public Use
  Company Number: JP-BRISTOL-MYERS SQUIBB COMPANY-BMS-2021-136285

PATIENT
  Sex: Male

DRUGS (6)
  1. YERVOY [Suspect]
     Active Substance: IPILIMUMAB
     Indication: Non-small cell lung cancer recurrent
     Dosage: UNK UNK, ONE TIME DOSE
     Route: 041
     Dates: start: 202107
  2. YERVOY [Suspect]
     Active Substance: IPILIMUMAB
     Dosage: UNK UNK, ONE TIME DOSE
     Route: 041
     Dates: start: 202108
  3. OPDIVO [Suspect]
     Active Substance: NIVOLUMAB
     Indication: Non-small cell lung cancer recurrent
     Dosage: UNK UNK, ONE TIME DOSE
     Route: 041
     Dates: start: 202107
  4. OPDIVO [Suspect]
     Active Substance: NIVOLUMAB
     Dosage: UNK UNK, ONE TIME DOSE
     Route: 041
     Dates: start: 202108
  5. PARAPLATIN [Suspect]
     Active Substance: CARBOPLATIN
     Indication: Non-small cell lung cancer recurrent
     Dosage: UNK, DISCONTINUED AFTER 2 DOSES
     Route: 041
     Dates: start: 202107
  6. PEMETREXED [Suspect]
     Active Substance: PEMETREXED
     Indication: Non-small cell lung cancer recurrent
     Dosage: UNK, DISCONTINUED AFTER 2 DOSES
     Route: 041
     Dates: start: 202107

REACTIONS (12)
  - Fulminant type 1 diabetes mellitus [Unknown]
  - Adrenal insufficiency [Unknown]
  - Aptyalism [Unknown]
  - Oral mucosal blistering [Recovering/Resolving]
  - Movement disorder [Unknown]
  - Physical deconditioning [Unknown]
  - Fall [Unknown]
  - Weight decreased [Unknown]
  - Pyrexia [Unknown]
  - Nausea [Unknown]
  - Vomiting [Unknown]
  - Muscular weakness [Unknown]

NARRATIVE: CASE EVENT DATE: 20210820
